FAERS Safety Report 8398835-6 (Version None)
Quarter: 2012Q2

REPORT INFORMATION
  Report Type: 
  Country: None (occurrence: None)
  Receive Date: 20120531
  Receipt Date: 20120525
  Transmission Date: 20120825
  Serious: Yes (Hospitalization, Other)
  Sender: FDA-Public Use
  Company Number: US-TEVA-340105USA

PATIENT
  Sex: Male

DRUGS (5)
  1. FENOFIBRATE [Suspect]
  2. ACETYLSALICYLIC ACID SRT [Concomitant]
  3. SAXAGLIPTIN [Suspect]
     Indication: TYPE 2 DIABETES MELLITUS
     Dates: start: 20100821, end: 20120418
  4. SIMVASTATIN [Suspect]
  5. INSULIN HUMAN [Suspect]
     Indication: TYPE 2 DIABETES MELLITUS
     Dates: start: 20111019

REACTIONS (1)
  - RENAL FAILURE ACUTE [None]
